FAERS Safety Report 9093712 (Version 3)
Quarter: 2013Q3

REPORT INFORMATION
  Report Type: Spontaneous
  Country: AT (occurrence: AT)
  Receive Date: 20130219
  Receipt Date: 20130702
  Transmission Date: 20140515
  Serious: Yes (Hospitalization)
  Sender: FDA-Public Use
  Company Number: AT-JNJFOC-20130210389

PATIENT
  Age: 49 Year
  Sex: Female
  Weight: 58 kg

DRUGS (8)
  1. XARELTO [Suspect]
     Indication: EMBOLISM VENOUS
     Route: 048
     Dates: start: 20130124, end: 20130124
  2. XARELTO [Suspect]
     Indication: EMBOLISM VENOUS
     Route: 048
     Dates: start: 201212, end: 201301
  3. XARELTO [Suspect]
     Indication: DEEP VEIN THROMBOSIS
     Route: 048
     Dates: start: 201212, end: 201301
  4. XARELTO [Suspect]
     Indication: DEEP VEIN THROMBOSIS
     Route: 048
     Dates: start: 20130124, end: 20130124
  5. EUTHYROX [Concomitant]
     Route: 065
  6. DICLOBENE [Concomitant]
     Route: 065
  7. BETASERC (BETAHISTINE HYDROCHLORIDE) [Concomitant]
     Route: 065
  8. DAFLON [Concomitant]
     Route: 065

REACTIONS (6)
  - Skin necrosis [Recovered/Resolved]
  - Renal failure acute [Recovering/Resolving]
  - Thrombosis [Unknown]
  - Gastrointestinal pain [Recovered/Resolved]
  - Nausea [Recovered/Resolved]
  - General physical condition abnormal [Recovered/Resolved]
